FAERS Safety Report 14609278 (Version 2)
Quarter: 2018Q1

REPORT INFORMATION
  Report Type: Spontaneous
  Country: US (occurrence: US)
  Receive Date: 20180307
  Receipt Date: 20180314
  Transmission Date: 20180509
  Serious: No
  Sender: FDA-Public Use
  Company Number: US-009507513-1803USA002482

PATIENT
  Sex: Female

DRUGS (1)
  1. NEXPLANON [Suspect]
     Active Substance: ETONOGESTREL
     Dosage: 1 ROD/3 YEARS
     Route: 059
     Dates: start: 201704

REACTIONS (6)
  - Implant site haemorrhage [Unknown]
  - Product quality issue [Not Recovered/Not Resolved]
  - Implant site erythema [Unknown]
  - Device kink [Not Recovered/Not Resolved]
  - Implant site inflammation [Unknown]
  - Device expulsion [Not Recovered/Not Resolved]
